FAERS Safety Report 9369445 (Version 1)
Quarter: 2013Q2

REPORT INFORMATION
  Report Type: Report from Study
  Country: US (occurrence: US)
  Receive Date: 20130626
  Receipt Date: 20130626
  Transmission Date: 20140414
  Serious: Yes (Other)
  Sender: FDA-Public Use
  Company Number: US-JNJFOC-20130613704

PATIENT
  Sex: Male

DRUGS (4)
  1. REMICADE [Suspect]
     Indication: CROHN^S DISEASE
     Route: 042
  2. SULFASALAZINE [Suspect]
     Indication: CROHN^S DISEASE
     Route: 065
  3. MERCAPTOPURINE-6 [Suspect]
     Indication: CROHN^S DISEASE
     Route: 065
  4. FOLIC ACID [Concomitant]
     Route: 065

REACTIONS (4)
  - Arthritis enteropathic [Unknown]
  - Pancreatic disorder [Unknown]
  - Fatigue [Unknown]
  - Therapeutic response decreased [Not Recovered/Not Resolved]
